FAERS Safety Report 9325095 (Version 1)
Quarter: 2013Q2

REPORT INFORMATION
  Report Type: Spontaneous
  Country: CN (occurrence: None)
  Receive Date: 20130530
  Receipt Date: 20130530
  Transmission Date: 20140414
  Serious: Yes (Other)
  Sender: FDA-Public Use
  Company Number: SYM-2013-04116

PATIENT
  Sex: 0

DRUGS (3)
  1. FLUOROURACIL [Suspect]
     Indication: GASTRIC CANCER
  2. OXALIPLATIN [Suspect]
     Indication: GASTRIC CANCER
  3. FOLINIC ACID [Suspect]
     Indication: GASTRIC CANCER

REACTIONS (1)
  - Febrile neutropenia [None]
